FAERS Safety Report 8822743 (Version 1)
Quarter: 2012Q4

REPORT INFORMATION
  Report Type: 
  Country: US (occurrence: US)
  Receive Date: 20121003
  Receipt Date: 20121003
  Transmission Date: 20130627
  Serious: No
  Sender: FDA-Public Use
  Company Number: US-VERTEX PHARMACEUTICAL INC.-2012-020912

PATIENT
  Age: 51 Year
  Sex: Female

DRUGS (5)
  1. VX-950 [Suspect]
     Indication: HEPATITIS C
     Dosage: 750 mg, tid
     Route: 048
  2. PEGASYS [Concomitant]
     Indication: HEPATITIS C
     Route: 058
  3. RIBAPAK [Concomitant]
     Indication: HEPATITIS C
     Dosage: 1200 mg, qd
     Route: 048
  4. WELLBUTRIN [Concomitant]
     Dosage: 100 mg, UNK
     Route: 048
  5. ALLERGY MEDICATION [Concomitant]
     Route: 048

REACTIONS (2)
  - Fatigue [Recovered/Resolved]
  - Pruritus [Recovered/Resolved]
